FAERS Safety Report 6885348-3 (Version None)
Quarter: 2010Q3

REPORT INFORMATION
  Report Type: 
  Country: None (occurrence: None)
  Receive Date: 20100727
  Receipt Date: 20100712
  Transmission Date: 20110219
  Serious: Yes (Death)
  Sender: FDA-Public Use
  Company Number: 1-18136696

PATIENT
  Sex: Male

DRUGS (13)
  1. QUININE SULFATE [Suspect]
     Indication: MUSCLE SPASMS
     Dosage: DAILY, ORAL
     Route: 048
     Dates: start: 20040211, end: 20041201
  2. QUININE SULFATE [Suspect]
     Indication: MUSCLE SPASMS
     Dosage: DAILY, ORAL
     Route: 048
     Dates: start: 20030219, end: 20030711
  3. QUININE SULFATE [Suspect]
     Indication: MUSCLE SPASMS
     Dosage: DAILY, ORAL
     Route: 048
     Dates: start: 20030823, end: 20040923
  4. QUININE SULFATE [Suspect]
     Indication: MUSCLE SPASMS
     Dosage: DAILY, ORAL
     Route: 048
     Dates: start: 20041109, end: 20041117
  5. LASIX [Concomitant]
  6. DIGOXIN [Concomitant]
  7. AMILORIDE HYDROCHLORIDE [Concomitant]
  8. OXYPURINOL [Concomitant]
  9. UROSODIOL [Concomitant]
  10. VALIUM [Concomitant]
  11. ZAROXOLYN [Concomitant]
  12. RESTORIL [Concomitant]
  13. ACIPHEX [Concomitant]

REACTIONS (1)
  - INJURY [None]
